FAERS Safety Report 18250410 (Version 1)
Quarter: 2020Q3

REPORT INFORMATION
  Report Type: Spontaneous
  Country: IT (occurrence: IT)
  Receive Date: 20200909
  Receipt Date: 20200909
  Transmission Date: 20201103
  Serious: Yes (Other)
  Sender: FDA-Public Use
  Company Number: IT-BAUSCH-BL-2020-025724

PATIENT
  Age: 51 Year
  Sex: Male

DRUGS (5)
  1. VISUDYNE [Suspect]
     Active Substance: VERTEPORFIN
     Route: 065
  2. VISUDYNE [Suspect]
     Active Substance: VERTEPORFIN
     Route: 065
  3. VISUDYNE [Suspect]
     Active Substance: VERTEPORFIN
     Indication: CHOROIDAL HAEMANGIOMA
     Route: 042
  4. VISUDYNE [Suspect]
     Active Substance: VERTEPORFIN
     Indication: PRODUCT USE IN UNAPPROVED INDICATION
     Route: 065
  5. VISUDYNE [Suspect]
     Active Substance: VERTEPORFIN
     Route: 065

REACTIONS (3)
  - Retinal cyst [Unknown]
  - Product use in unapproved indication [Unknown]
  - Macular degeneration [Unknown]
